FAERS Safety Report 14907903 (Version 1)
Quarter: 2018Q2

REPORT INFORMATION
  Report Type: Spontaneous
  Country: US (occurrence: US)
  Receive Date: 20180429
  Receipt Date: 20180429
  Transmission Date: 20180711
  Serious: No
  Sender: FDA-Public Use
  Company Number: None

PATIENT
  Age: 37 Year
  Sex: Female
  Weight: 65.25 kg

DRUGS (6)
  1. ACETAZOLAMIDE. [Suspect]
     Active Substance: ACETAZOLAMIDE
     Indication: HYPOBARISM
     Dosage: ?          QUANTITY:1 CAPSULE(S);?
     Route: 048
     Dates: start: 20180413, end: 20180417
  2. DIOMAX [Concomitant]
  3. DOXYCYCLINE. [Concomitant]
     Active Substance: DOXYCYCLINE
  4. ADVIL [Concomitant]
     Active Substance: IBUPROFEN
  5. LEVON 28 (ORAL CONTRACEPTIVE) [Concomitant]
  6. IRON [Concomitant]
     Active Substance: IRON

REACTIONS (3)
  - Pain [None]
  - Paraesthesia [None]
  - Insomnia [None]

NARRATIVE: CASE EVENT DATE: 20180415
